FAERS Safety Report 5036313-2 (Version None)
Quarter: 2006Q2

REPORT INFORMATION
  Report Type: 
  Country: None (occurrence: None)
  Receive Date: 20060601
  Receipt Date: 20060427
  Transmission Date: 20061013
  Serious: No
  Sender: FDA-Public Use
  Company Number: US200604004762

PATIENT
  Age: 38 Year
  Sex: Female

DRUGS (2)
  1. FLUOXETINE HYDROCHLORIDE [Suspect]
     Indication: POSTPARTUM DEPRESSION
     Dates: start: 20060101, end: 20060101
  2. CYMBALTA [Suspect]
     Indication: POSTPARTUM DEPRESSION
     Dosage: 30 MG,
     Dates: start: 20060401

REACTIONS (3)
  - ASTHENIA [None]
  - FATIGUE [None]
  - SOMNOLENCE [None]
